FAERS Safety Report 5315565-5 (Version None)
Quarter: 2007Q2

REPORT INFORMATION
  Report Type: 
  Country: None (occurrence: None)
  Receive Date: 20070430
  Receipt Date: 20070430
  Transmission Date: 20071010
  Serious: Yes (Life-Threatening, Hospitalization, Other)
  Sender: FDA-Public Use
  Company Number: None

PATIENT
  Age: 85 Year
  Sex: Male
  Weight: 87.8 kg

DRUGS (1)
  1. BEVACIZUMAB     GENENTECH [Suspect]
     Indication: COLON CANCER METASTATIC
     Dosage: 700 MG   ONCE   IV
     Route: 042
     Dates: start: 20061107, end: 20070410

REACTIONS (11)
  - ASPIRATION [None]
  - DIARRHOEA [None]
  - DYSPNOEA [None]
  - HYPOTENSION [None]
  - ILEUS [None]
  - MALAISE [None]
  - MYOCARDIAL INFARCTION [None]
  - NAUSEA [None]
  - PNEUMATOSIS [None]
  - SUPRAVENTRICULAR TACHYCARDIA [None]
  - VOMITING [None]
